FAERS Safety Report 14277095 (Version 2)
Quarter: 2019Q1

REPORT INFORMATION
  Report Type: Spontaneous
  Country: RU (occurrence: RU)
  Receive Date: 20171212
  Receipt Date: 20190208
  Transmission Date: 20190417
  Serious: Yes (Other)
  Sender: FDA-Public Use
  Company Number: RU-ASTRAZENECA-2017SF26146

PATIENT
  Age: 70 Year
  Sex: Female
  Weight: 77 kg

DRUGS (6)
  1. FORXIGA [Suspect]
     Active Substance: DAPAGLIFLOZIN
     Indication: TYPE 2 DIABETES MELLITUS
     Route: 048
     Dates: start: 201501
  2. METFORMIN [Concomitant]
     Active Substance: METFORMIN HYDROCHLORIDE
  3. GLIBOMET [Concomitant]
     Active Substance: GLYBURIDE\METFORMIN HYDROCHLORIDE
  4. ASPIRIN CARDIO [Concomitant]
     Active Substance: ASPIRIN
  5. SOTAHEXAL [Concomitant]
     Active Substance: SOTALOL
  6. MOXONIDINE [Concomitant]
     Active Substance: MOXONIDINE

REACTIONS (2)
  - Lower limb fracture [Not Recovered/Not Resolved]
  - Accident [Unknown]
